FAERS Safety Report 9068914 (Version 1)
Quarter: 2013Q1

REPORT INFORMATION
  Report Type: Report from Study
  Country: DE (occurrence: DE)
  Receive Date: 20130215
  Receipt Date: 20130215
  Transmission Date: 20140127
  Serious: Yes (Other)
  Sender: FDA-Public Use
  Company Number: DE-ASTELLAS-2013US001715

PATIENT
  Sex: Female

DRUGS (3)
  1. ERLOTINIB TABLET [Suspect]
     Indication: NON-SMALL CELL LUNG CANCER
     Dosage: 150 MG, UID/QD
     Route: 048
     Dates: start: 200509, end: 200509
  2. ERLOTINIB TABLET [Suspect]
     Dosage: 100 MG, UID/QD
     Route: 048
     Dates: start: 200509, end: 200707
  3. ERLOTINIB TABLET [Suspect]
     Dosage: 75 MG, UID/QD
     Route: 048
     Dates: start: 200707, end: 200806

REACTIONS (8)
  - General physical health deterioration [Unknown]
  - Neuropathy peripheral [Unknown]
  - Oedema [Unknown]
  - Rash [Unknown]
  - Blood bilirubin increased [Unknown]
  - Influenza like illness [Unknown]
  - Diarrhoea [Unknown]
  - Tachycardia [Unknown]
